FAERS Safety Report 6861312-5 (Version None)
Quarter: 2010Q3

REPORT INFORMATION
  Report Type: 
  Country: None (occurrence: None)
  Receive Date: 20100720
  Receipt Date: 20100716
  Transmission Date: 20110219
  Serious: Yes (Death)
  Sender: FDA-Public Use
  Company Number: US-GILEAD-2010-0030467

PATIENT
  Sex: Female
  Weight: 63.56 kg

DRUGS (8)
  1. LETAIRIS [Suspect]
     Indication: PULMONARY ARTERIAL HYPERTENSION
     Route: 048
     Dates: start: 20100602
  2. FUROSEMIDE [Concomitant]
  3. AVAPRO [Concomitant]
  4. GABAPENTIN [Concomitant]
  5. SIMVASTATIN [Concomitant]
  6. FOLIC ACID [Concomitant]
  7. MULTI-VITAMINS [Concomitant]
  8. ADULT ASPIRIN [Concomitant]

REACTIONS (1)
  - DEATH [None]
